FAERS Safety Report 10744078 (Version 1)
Quarter: 2015Q1

REPORT INFORMATION
  Report Type: Spontaneous
  Country: CA (occurrence: None)
  Receive Date: 20150126
  Receipt Date: 20150126
  Transmission Date: 20150721
  Serious: Yes (Other)
  Sender: FDA-Public Use
  Company Number: 2015-000058

PATIENT
  Age: 71 Year
  Sex: Female

DRUGS (8)
  1. ACTONEL [Suspect]
     Active Substance: RISEDRONATE SODIUM
     Indication: OSTEOPOROSIS
     Dosage: ONCE WEEKLY
     Route: 048
     Dates: start: 20100910, end: 20130909
  2. METFORMIN [Concomitant]
     Active Substance: METFORMIN HYDROCHLORIDE
  3. CYMBALTA [Concomitant]
     Active Substance: DULOXETINE HYDROCHLORIDE
  4. MULTIVITAMINS (ASCORBIC ACID, ERGOCALCIFEROL, FOLIC ACID, NICOTINAMIDE, PANTHENOL, RETINOL, RIBOFLAVIN, THIAMINE HYDROCHLORIDE) [Concomitant]
     Active Substance: VITAMINS
  5. PROBIOTICS [Concomitant]
     Active Substance: PROBIOTICS NOS
  6. NAPROXEN. [Concomitant]
     Active Substance: NAPROXEN
  7. PROLIA [Suspect]
     Active Substance: DENOSUMAB
     Indication: OSTEOPOROSIS POSTMENOPAUSAL
     Route: 058
     Dates: start: 20131030, end: 20141208
  8. MULTIVITAMINS (ASCORBIC ACID ERGOCALCIFEROL, FOLIC ACID, NICOTINAMIDE, PANTHENOL, RETINOL, RIBOFLAVIN, THIAMINE HYDROCHLORIDE) [Concomitant]

REACTIONS (8)
  - Alveolar bone resorption [None]
  - Gingival disorder [None]
  - Gingival bleeding [None]
  - Tooth deposit [None]
  - Tooth loss [None]
  - Periodontal disease [None]
  - Gingivitis [None]
  - Vomiting [None]

NARRATIVE: CASE EVENT DATE: 20141020
